FAERS Safety Report 8784297 (Version 1)
Quarter: 2012Q4

REPORT INFORMATION
  Report Type: Spontaneous
  Country: US (occurrence: None)
  Receive Date: 20120905
  Receipt Date: 20120905
  Transmission Date: 20130627
  Serious: Yes (Other)
  Sender: FDA-Public Use
  Company Number: None

PATIENT
  Age: 63 Year
  Sex: Female
  Weight: 113.4 kg

DRUGS (2)
  1. DICLOFENAC [Suspect]
     Indication: POST PROCEDURAL INFLAMMATION
     Route: 048
     Dates: start: 20120831, end: 20120831
  2. DICLOFENAC [Suspect]
     Indication: POST PROCEDURAL SWELLING
     Route: 048
     Dates: start: 20120831, end: 20120831

REACTIONS (5)
  - Hypersensitivity [None]
  - Feeling hot [None]
  - Swelling [None]
  - Sneezing [None]
  - Pharyngeal disorder [None]
